FAERS Safety Report 13013066 (Version 2)
Quarter: 2017Q2

REPORT INFORMATION
  Report Type: Spontaneous
  Country: PE (occurrence: PE)
  Receive Date: 20161209
  Receipt Date: 20170421
  Transmission Date: 20170830
  Serious: No
  Sender: FDA-Public Use
  Company Number: PE-PFIZER INC-2016565671

PATIENT
  Age: 77 Year
  Sex: Female

DRUGS (1)
  1. XALATAN [Suspect]
     Active Substance: LATANOPROST
     Indication: RETINAL INFARCTION
     Dosage: 2 GTT, 1X/DAY (ONE DROP ON EACH EYE DAILY)
     Route: 047

REACTIONS (1)
  - No adverse event [Unknown]
